FAERS Safety Report 7008694-1 (Version None)
Quarter: 2010Q3

REPORT INFORMATION
  Report Type: 
  Country: None (occurrence: None)
  Receive Date: 20100922
  Receipt Date: 20100917
  Transmission Date: 20110219
  Serious: Yes (Other)
  Sender: FDA-Public Use
  Company Number: FR-MERCK-1009FRA00080

PATIENT
  Sex: Male

DRUGS (2)
  1. EMEND [Suspect]
     Route: 048
  2. IFOSFAMIDE [Suspect]
     Indication: SARCOMA
     Route: 065

REACTIONS (1)
  - ENCEPHALOPATHY [None]
